FAERS Safety Report 21341476 (Version 2)
Quarter: 2022Q3

REPORT INFORMATION
  Report Type: Other
  Country: US (occurrence: None)
  Receive Date: 20220916
  Receipt Date: 20220920
  Transmission Date: 20221027
  Serious: Yes (Death)
  Sender: FDA-Public Use
  Company Number: US-ROCHE-3179586

PATIENT
  Age: 88 Year
  Sex: Female

DRUGS (2)
  1. XELODA [Suspect]
     Active Substance: CAPECITABINE
     Indication: Oesophageal carcinoma
     Dosage: TAKE 2 TABLETS BY MOUTH TWICE A DAY FOR 7 DAYS THEN 7 DAYS OFF. REPEAT. TAKE WITH WATER WITHIN 30 MI
     Route: 048
     Dates: start: 20220811, end: 20220831
  2. XELODA [Suspect]
     Active Substance: CAPECITABINE
     Indication: Oesophageal carcinoma

REACTIONS (2)
  - Oesophageal carcinoma [Fatal]
  - Off label use [Unknown]

NARRATIVE: CASE EVENT DATE: 20220901
